FAERS Safety Report 6908282-9 (Version None)
Quarter: 2010Q3

REPORT INFORMATION
  Report Type: 
  Country: None (occurrence: None)
  Receive Date: 20100805
  Receipt Date: 20100802
  Transmission Date: 20110219
  Serious: Yes (Hospitalization)
  Sender: FDA-Public Use
  Company Number: US-BRISTOL-MYERS SQUIBB COMPANY-15222870

PATIENT
  Age: 63 Year
  Sex: Female
  Weight: 69 kg

DRUGS (3)
  1. TAXOL [Suspect]
     Indication: NON-SMALL CELL LUNG CANCER
     Dosage: LAST DOSE ON 06JUL10
     Route: 042
     Dates: start: 20100427
  2. CARBOPLATIN [Suspect]
     Indication: NON-SMALL CELL LUNG CANCER
     Dosage: LAST DOSE ON 06JUL10
     Route: 042
     Dates: start: 20100427
  3. RADIOTHERAPY [Suspect]
     Indication: NON-SMALL CELL LUNG CANCER
     Dosage: 1 DF=74GY.(EXTERNAL BEAM IMRT) LAST DOSE: 22JUN10. 37 FRACTIONS 56 ELASPED DAYS:
     Dates: start: 20100427

REACTIONS (1)
  - ARRHYTHMIA SUPRAVENTRICULAR [None]
